FAERS Safety Report 7274310-7 (Version None)
Quarter: 2011Q1

REPORT INFORMATION
  Report Type: 
  Country: None (occurrence: None)
  Receive Date: 20110131
  Receipt Date: 20110131
  Transmission Date: 20110831
  Serious: Yes (Other)
  Sender: FDA-Public Use
  Company Number: None

PATIENT
  Sex: Male
  Weight: 76.6579 kg

DRUGS (1)
  1. AZATHIOPRINE [Suspect]
     Dates: start: 20050101

REACTIONS (2)
  - PRODUCT SUBSTITUTION ISSUE [None]
  - LABORATORY TEST ABNORMAL [None]
